FAERS Safety Report 4634061-1 (Version None)
Quarter: 2005Q2

REPORT INFORMATION
  Report Type: 
  Country: None (occurrence: None)
  Receive Date: 20050413
  Receipt Date: 20050316
  Transmission Date: 20051028
  Serious: Yes (Other)
  Sender: FDA-Public Use
  Company Number: JP-ROCHE-399546

PATIENT
  Age: 69 Year
  Sex: Female

DRUGS (4)
  1. TAMIFLU [Suspect]
     Route: 048
     Dates: start: 20050222, end: 20050222
  2. CALONAL [Concomitant]
     Indication: DRUG USE FOR UNKNOWN INDICATION
     Route: 048
     Dates: start: 20050222, end: 20050222
  3. TROXIPIDE [Concomitant]
     Indication: DRUG USE FOR UNKNOWN INDICATION
     Dosage: DRUG NAME REPORTED AS ^TROXSIN^
     Route: 048
     Dates: start: 20050222, end: 20050222
  4. BANAN [Concomitant]
     Indication: DRUG USE FOR UNKNOWN INDICATION
     Route: 048
     Dates: start: 20050222, end: 20050222

REACTIONS (1)
  - ANGLE CLOSURE GLAUCOMA [None]
